FAERS Safety Report 21017960 (Version 1)
Quarter: 2022Q2

REPORT INFORMATION
  Report Type: Spontaneous
  Country: CA (occurrence: CA)
  Receive Date: 20220628
  Receipt Date: 20220628
  Transmission Date: 20220720
  Serious: Yes (Other)
  Sender: FDA-Public Use
  Company Number: CA-PFIZER INC-2019144541

PATIENT
  Age: 47 Year
  Sex: Male

DRUGS (4)
  1. XELJANZ [Suspect]
     Active Substance: TOFACITINIB CITRATE
     Indication: Psoriatic arthropathy
     Dosage: 5 MG, 2X/DAY
     Route: 048
     Dates: start: 20190327
  2. METHOTREXATE [Concomitant]
     Active Substance: METHOTREXATE
     Dosage: 20 MG, UNK
     Dates: start: 2015
  3. NAPROXEN [Concomitant]
     Active Substance: NAPROXEN
     Dosage: UNK
  4. COVID-19 VACCINE [Concomitant]
     Dosage: SECOND SHOT OF COVID 19

REACTIONS (4)
  - Condition aggravated [Unknown]
  - Psoriatic arthropathy [Unknown]
  - Abdominal pain upper [Unknown]
  - Aspiration joint [Unknown]

NARRATIVE: CASE EVENT DATE: 20210701
